FAERS Safety Report 25039064 (Version 2)
Quarter: 2025Q1

REPORT INFORMATION
  Report Type: Spontaneous
  Country: CA (occurrence: CA)
  Receive Date: 20250305
  Receipt Date: 20250327
  Transmission Date: 20250409
  Serious: Yes (Death)
  Sender: REGENERON
  Company Number: CA-BAYER-2025A030063

PATIENT
  Sex: Male

DRUGS (1)
  1. EYLEA [Suspect]
     Active Substance: AFLIBERCEPT
     Indication: Diabetic retinal oedema
     Route: 031
     Dates: start: 20230203, end: 20250218

REACTIONS (1)
  - Death [Fatal]

NARRATIVE: CASE EVENT DATE: 20250227
